FAERS Safety Report 10215185 (Version 1)
Quarter: 2014Q2

REPORT INFORMATION
  Report Type: Spontaneous
  Country: FR (occurrence: FR)
  Receive Date: 20140603
  Receipt Date: 20140603
  Transmission Date: 20141212
  Serious: Yes (Other)
  Sender: FDA-Public Use
  Company Number: PHHY2014FR065656

PATIENT
  Age: 52 Year
  Sex: Female

DRUGS (1)
  1. METOPROLOL SANDOZ [Suspect]
     Indication: HYPERTENSION
     Route: 048
     Dates: start: 20111031, end: 20111105

REACTIONS (1)
  - Angioedema [Recovered/Resolved]
